FAERS Safety Report 8244514-5 (Version None)
Quarter: 2012Q1

REPORT INFORMATION
  Report Type: 
  Country: None (occurrence: None)
  Receive Date: 20120329
  Receipt Date: 20120322
  Transmission Date: 20120608
  Serious: Yes (Other)
  Sender: FDA-Public Use
  Company Number: US-JNJFOC-20111005776

PATIENT
  Sex: Female

DRUGS (1)
  1. LEVAQUIN [Suspect]
     Indication: DIVERTICULITIS
     Route: 048
     Dates: start: 20080801

REACTIONS (4)
  - TENDON RUPTURE [None]
  - TENOSYNOVITIS [None]
  - TENDONITIS [None]
  - PLANTAR FASCIITIS [None]
